FAERS Safety Report 20336276 (Version 1)
Quarter: 2022Q1

REPORT INFORMATION
  Report Type: Spontaneous
  Country: US (occurrence: None)
  Receive Date: 20220114
  Receipt Date: 20220114
  Transmission Date: 20220423
  Serious: Yes (Hospitalization)
  Sender: FDA-Public Use
  Company Number: None

PATIENT
  Sex: Female

DRUGS (8)
  1. SPRYCEL [Suspect]
     Active Substance: DASATINIB
     Indication: Chronic myeloid leukaemia
     Dosage: TAKE 1 TABLET (20 MG TOTAL) BY MOUTH (TWO) TIMES A WEEK ON MONDAYS AND THURSDAYS?
     Route: 048
     Dates: start: 20210526
  2. CELEBREX [Concomitant]
     Active Substance: CELECOXIB
  3. CLONAZEPAM [Concomitant]
     Active Substance: CLONAZEPAM
  4. GABAPENTIN [Concomitant]
     Active Substance: GABAPENTIN
  5. KEPPRA TAB [Concomitant]
  6. LINZESS CAP [Concomitant]
  7. PROTONIX TAB [Concomitant]
  8. SEROQUEL TAB [Concomitant]

REACTIONS (2)
  - Cerebrovascular accident [None]
  - Nausea [None]
